FAERS Safety Report 17206404 (Version 1)
Quarter: 2020Q1

REPORT INFORMATION
  Report Type: Spontaneous
  Country: US (occurrence: US)
  Receive Date: 20191226
  Receipt Date: 20191226
  Transmission Date: 20200409
  Serious: Yes (Hospitalization)
  Sender: FDA-Public Use
  Company Number: None

PATIENT
  Age: 19 Year
  Sex: Male
  Weight: 57.4 kg

DRUGS (14)
  1. BACTRIM [Concomitant]
     Active Substance: SULFAMETHOXAZOLE\TRIMETHOPRIM
     Dates: start: 20191120, end: 20191127
  2. CREON [Concomitant]
     Active Substance: PANCRELIPASE AMYLASE\PANCRELIPASE LIPASE\PANCRELIPASE PROTEASE
  3. TOBRAMYCIN. [Concomitant]
     Active Substance: TOBRAMYCIN
     Dates: start: 20191120, end: 20191127
  4. FLUTICAONSE-SALMETEROL 100-50 [Concomitant]
  5. PULMOZYME [Concomitant]
     Active Substance: DORNASE ALFA
  6. OLANZAPINE 10MG [Concomitant]
     Active Substance: OLANZAPINE
  7. ORKAMBI [Suspect]
     Active Substance: IVACAFTOR\LUMACAFTOR
     Indication: CYSTIC FIBROSIS
     Route: 048
     Dates: start: 20170718
  8. MEROPENEM. [Concomitant]
     Active Substance: MEROPENEM
     Dates: start: 20191120, end: 20191127
  9. OMEPRAZOLE 20MG [Concomitant]
     Active Substance: OMEPRAZOLE
  10. SODIUM CHLORIDE 7% [Concomitant]
     Active Substance: SODIUM CHLORIDE
  11. ACETAMINOPHEN 325MG [Concomitant]
  12. MVW D3000 MULTIVITAMIN [Concomitant]
  13. SERTRALINE 75MG [Concomitant]
     Active Substance: SERTRALINE HYDROCHLORIDE
  14. LEVALBUTEROL 45MCG [Concomitant]

REACTIONS (5)
  - Haematemesis [None]
  - Dyspnoea [None]
  - Staphylococcal infection [None]
  - Drug abuse [None]
  - Infective pulmonary exacerbation of cystic fibrosis [None]

NARRATIVE: CASE EVENT DATE: 20191027
